FAERS Safety Report 8107287-2 (Version None)
Quarter: 2012Q1

REPORT INFORMATION
  Report Type: 
  Country: None (occurrence: None)
  Receive Date: 20120202
  Receipt Date: 20120127
  Transmission Date: 20120608
  Serious: Yes (Other)
  Sender: FDA-Public Use
  Company Number: BR-PFIZER INC-2012024614

PATIENT
  Age: 48 Year
  Sex: Female
  Weight: 53 kg

DRUGS (2)
  1. LYRICA [Suspect]
     Indication: FIBROMYALGIA
     Dosage: 75 MG, 1X/DAY
     Route: 048
     Dates: start: 20110101
  2. MELLERIL ^NOVARTIS^ [Concomitant]
     Indication: DEPRESSION
     Dosage: 10 MG, 1X/DAY

REACTIONS (7)
  - EATING DISORDER [None]
  - NAUSEA [None]
  - GASTROINTESTINAL PAIN [None]
  - WEIGHT DECREASED [None]
  - DYSGEUSIA [None]
  - HEPATIC PAIN [None]
  - PAIN IN EXTREMITY [None]
